FAERS Safety Report 10272900 (Version 1)
Quarter: 2014Q2

REPORT INFORMATION
  Report Type: Spontaneous
  Country: US (occurrence: None)
  Receive Date: 20140630
  Receipt Date: 20140630
  Transmission Date: 20141212
  Serious: Yes (Life-Threatening, Other)
  Sender: FDA-Public Use
  Company Number: None

PATIENT
  Age: 22 Year
  Sex: Female
  Weight: 58.97 kg

DRUGS (1)
  1. XULANE [Suspect]
     Indication: CONTRACEPTION
     Dosage: WEEKLY BIRTH CONTROL PATCH WEEKLY APPLIED TO A SURFACE USUALLY THE SKIN
     Route: 061
     Dates: start: 20140608, end: 20140622

REACTIONS (8)
  - Product substitution issue [None]
  - Haemorrhage [None]
  - Abdominal distension [None]
  - Headache [None]
  - Memory impairment [None]
  - Fatigue [None]
  - Asthenia [None]
  - Mood swings [None]
